FAERS Safety Report 8067358-6 (Version None)
Quarter: 2012Q1

REPORT INFORMATION
  Report Type: 
  Country: None (occurrence: None)
  Receive Date: 20120124
  Receipt Date: 20120117
  Transmission Date: 20120608
  Serious: Yes (Life-Threatening, Hospitalization, Other)
  Sender: FDA-Public Use
  Company Number: FR-PFIZER INC-K201100400

PATIENT
  Age: 81 Year
  Sex: Male

DRUGS (14)
  1. RAMIPRIL [Interacting]
     Indication: CARDIAC FAILURE
     Dosage: 10 MG DAILY
     Route: 048
     Dates: end: 20101209
  2. ASPIRIN [Concomitant]
     Dosage: UNK
     Dates: end: 20101210
  3. BRONCHODUAL [Concomitant]
     Dosage: UNK
  4. ALLOPURINOL [Concomitant]
     Dosage: UNK
  5. PROCORALAN [Interacting]
     Indication: CARDIAC FAILURE
     Dosage: 5 MG DAILY
     Dates: end: 20101209
  6. FENOFIBRATE [Concomitant]
     Dosage: UNK
  7. CORDARONE [Interacting]
     Indication: CARDIAC FAILURE
     Dosage: 200 MG, DAILY
     Route: 048
     Dates: end: 20101209
  8. BUDESONIDE/FORMOTEROL [Concomitant]
     Dosage: UNK
  9. SPIRIVA [Concomitant]
     Dosage: UNK
  10. CLORAZEPATE DIPOTASSIUM [Concomitant]
     Dosage: UNK
  11. LASIX [Interacting]
     Indication: CARDIAC FAILURE
     Dosage: 40 MG DAILY THEN 30 MG DAILY
     Route: 048
     Dates: end: 20101209
  12. DIGOXIN [Suspect]
     Indication: CARDIAC FAILURE
     Dosage: 0.50 MG DAILY
     Route: 048
     Dates: end: 20101209
  13. XYZAL [Concomitant]
     Dosage: UNK
  14. ACETAMINOPHEN [Concomitant]
     Dosage: UNK

REACTIONS (13)
  - VOMITING [None]
  - RENAL FAILURE ACUTE [None]
  - THROMBOCYTOPENIA [None]
  - OEDEMA PERIPHERAL [None]
  - NAUSEA [None]
  - BRADYCARDIA [None]
  - PULMONARY OEDEMA [None]
  - HYPOTENSION [None]
  - BLINDNESS UNILATERAL [None]
  - DEHYDRATION [None]
  - DRUG INTERACTION [None]
  - LUNG DISORDER [None]
  - CARDIOACTIVE DRUG LEVEL INCREASED [None]
